FAERS Safety Report 4390300-6 (Version None)
Quarter: 2004Q2

REPORT INFORMATION
  Report Type: 
  Country: None (occurrence: None)
  Receive Date: 20040630
  Receipt Date: 20040617
  Transmission Date: 20050107
  Serious: Yes (Life-Threatening, Hospitalization)
  Sender: FDA-Public Use
  Company Number: HQWYE911724APR03

PATIENT
  Age: 74 Year
  Sex: Female

DRUGS (20)
  1. PANTOZOL       (PANTOPRAZOLE, INJECTION) [Suspect]
     Indication: DUODENAL ULCER
     Dosage: 8 MNG 1X PER 1 HR, INTRAVENOUS
     Route: 042
     Dates: start: 20030123, end: 20030126
  2. FOLIC ACID [Concomitant]
  3. LOESFERRON (FERROUS GLUCONATE) [Concomitant]
  4. CALCIUM CARBONATE [Concomitant]
  5. PROPULSID [Concomitant]
  6. CIPROFLOXACIN [Concomitant]
  7. ALVITYL (VITAMIN NOS) [Concomitant]
  8. CARVEDILOL [Concomitant]
  9. NEORECORMON (EPOETIN ALFA) [Concomitant]
  10. GLURENORM (GLIQUIDONE) [Concomitant]
  11. METFORMIN [Concomitant]
  12. ATENOLOL [Concomitant]
  13. ASPIRIN [Concomitant]
  14. ESTULIC (GUANFACINE HYDROCHLORIDE) [Concomitant]
  15. MINITRAN (GLYCERYL TRINITRATE) [Concomitant]
  16. FENOFIBRATE [Concomitant]
  17. KONAKION [Concomitant]
  18. PPSB ^SERAPHARM^ (FACTOR II (PROTHROMBIN)/FACTOR IX COMPLEX HUMAN/FACT [Concomitant]
  19. PANTOZOL (PANTOPRAZOLE, INJECTION) [Suspect]
     Dosage: 40 MG 2X PER 1 DAY, INTRAVENOUS
     Route: 042
     Dates: start: 20030127
  20. WARFARIN SODIUM [Suspect]
     Dosage: ORAL
     Route: 048
     Dates: start: 20021217, end: 20030126

REACTIONS (4)
  - ACTIVATED PARTIAL THROMBOPLASTIN TIME PROLONGED [None]
  - DRUG INTERACTION [None]
  - GASTROINTESTINAL HAEMORRHAGE [None]
  - INTERNATIONAL NORMALISED RATIO INCREASED [None]
